FAERS Safety Report 7539029-3 (Version None)
Quarter: 2011Q2

REPORT INFORMATION
  Report Type: 
  Country: None (occurrence: None)
  Receive Date: 20110524
  Receipt Date: 20110421
  Transmission Date: 20111010
  Serious: No
  Sender: FDA-Public Use
  Company Number: 031764

PATIENT
  Sex: Female
  Weight: 86.2 kg

DRUGS (3)
  1. CIMZIA [Suspect]
     Indication: RHEUMATOID ARTHRITIS
     Dosage: (1 SHOT SUBCUTANEOUS)
     Route: 058
     Dates: start: 20100421
  2. ZANTAC /00550802/ [Concomitant]
  3. NABUMETONE [Concomitant]

REACTIONS (5)
  - HEADACHE [None]
  - STOMATITIS [None]
  - ABDOMINAL PAIN [None]
  - NAUSEA [None]
  - RETCHING [None]
